FAERS Safety Report 6636993-1 (Version None)
Quarter: 2010Q1

REPORT INFORMATION
  Report Type: 
  Country: None (occurrence: None)
  Receive Date: 20100316
  Receipt Date: 20100304
  Transmission Date: 20100710
  Serious: Yes (Other)
  Sender: FDA-Public Use
  Company Number: NL-PFIZER INC-2010029147

PATIENT
  Sex: Male

DRUGS (2)
  1. NEURONTIN [Suspect]
     Dosage: UNK
  2. NIFEDIPINE [Suspect]
     Dosage: UNK

REACTIONS (2)
  - BLOOD SODIUM DECREASED [None]
  - HYPERTENSION [None]
